FAERS Safety Report 8598091-X (Version None)
Quarter: 2012Q3

REPORT INFORMATION
  Report Type: 
  Country: None (occurrence: None)
  Receive Date: 20120816
  Receipt Date: 20120806
  Transmission Date: 20120928
  Serious: Yes (Hospitalization)
  Sender: FDA-Public Use
  Company Number: DE-CELGENEUS-062-21880-10122830

PATIENT
  Age: 66 Year
  Sex: Male

DRUGS (10)
  1. REVLIMID [Suspect]
     Indication: MULTIPLE MYELOMA
     Dosage: 10 MILLIGRAM
     Route: 048
     Dates: start: 20091130, end: 20101223
  2. DEXAMETHASONE [Suspect]
     Indication: MULTIPLE MYELOMA
     Route: 048
     Dates: start: 20091130
  3. TREOSULFAN [Suspect]
     Dosage: 500
     Route: 065
  4. DEXAMETHASONE [Suspect]
     Route: 048
  5. COTRIM DS [Concomitant]
     Indication: PNEUMONIA
     Dosage: 5760 MILLIGRAM
     Route: 048
     Dates: start: 20101203, end: 20101224
  6. REVLIMID [Suspect]
     Dosage: 15 MILLIGRAM
     Route: 048
     Dates: start: 20101231
  7. PIOGLITAZONE HCL [Suspect]
     Indication: MULTIPLE MYELOMA
     Dosage: 60 MILLIGRAM
     Route: 048
     Dates: start: 20091130
  8. TREOSULFAN [Suspect]
     Dosage: 250 MILLIGRAM
     Route: 048
     Dates: start: 20091130, end: 20101223
  9. TREOSULFAN [Suspect]
     Indication: MULTIPLE MYELOMA
     Dosage: 250 MILLIGRAM
     Route: 048
     Dates: start: 20091130, end: 20101223
  10. VFEND [Concomitant]
     Indication: PNEUMONIA
     Dosage: 400 MILLIGRAM
     Route: 048
     Dates: start: 20101203, end: 20101224

REACTIONS (2)
  - HYPERSENSITIVITY [None]
  - CONSTIPATION [None]
